FAERS Safety Report 4449882-8 (Version None)
Quarter: 2004Q3

REPORT INFORMATION
  Report Type: 
  Country: None (occurrence: None)
  Receive Date: 20040915
  Receipt Date: 20040906
  Transmission Date: 20050211
  Serious: Yes (Other)
  Sender: FDA-Public Use
  Company Number: DE-MERCK-0409USA00348

PATIENT
  Sex: Female

DRUGS (1)
  1. MODURETIC 5-50 [Suspect]
     Route: 048
     Dates: end: 20031201

REACTIONS (3)
  - DIARRHOEA [None]
  - FATIGUE [None]
  - PANCREATIC INSUFFICIENCY [None]
